FAERS Safety Report 9539846 (Version 1)
Quarter: 2013Q3

REPORT INFORMATION
  Report Type: Spontaneous
  Country: US (occurrence: US)
  Receive Date: 20130920
  Receipt Date: 20130920
  Transmission Date: 20140515
  Serious: No
  Sender: FDA-Public Use
  Company Number: US-PURDUE-USA-2011-0062697

PATIENT
  Sex: Male

DRUGS (1)
  1. HYDROMORPHONE HCL (SIMILAR TO 19-892) [Suspect]
     Indication: PRODUCT USED FOR UNKNOWN INDICATION
     Dosage: 8 MG, UNK

REACTIONS (1)
  - Drug effect decreased [Unknown]
